FAERS Safety Report 13615539 (Version 2)
Quarter: 2017Q2

REPORT INFORMATION
  Report Type: Spontaneous
  Country: US (occurrence: US)
  Receive Date: 20170606
  Receipt Date: 20170614
  Transmission Date: 20170830
  Serious: No
  Sender: FDA-Public Use
  Company Number: US-PFIZER INC-2017246503

PATIENT
  Age: 41 Year
  Sex: Female
  Weight: 104.31 kg

DRUGS (1)
  1. NEURONTIN [Suspect]
     Active Substance: GABAPENTIN
     Indication: SEIZURE
     Dosage: UNK

REACTIONS (6)
  - Myalgia [Unknown]
  - Feeling jittery [Unknown]
  - Memory impairment [Unknown]
  - Nervousness [Unknown]
  - Disturbance in attention [Recovered/Resolved]
  - Asthenia [Unknown]

NARRATIVE: CASE EVENT DATE: 2001
